FAERS Safety Report 9064703 (Version 1)
Quarter: 2013Q1

REPORT INFORMATION
  Report Type: Report from Study
  Country: US (occurrence: US)
  Receive Date: 20130129
  Receipt Date: 20130129
  Transmission Date: 20140127
  Serious: Yes (Other)
  Sender: FDA-Public Use
  Company Number: US-RB-003193-10

PATIENT
  Age: 50 Year
  Sex: Male

DRUGS (4)
  1. SUBOXONE [Suspect]
     Indication: BACK PAIN
     Route: 065
     Dates: start: 201001, end: 201102
  2. BLOOD PRESSURE MEDICATION [Concomitant]
     Indication: PRODUCT USED FOR UNKNOWN INDICATION
     Dosage: DOSING DETAILS UNKNOWN
     Route: 065
  3. SIMVASTATIN [Concomitant]
     Indication: HYPOCHOLESTEROLAEMIA
     Dosage: DOSING DETAILS UNKNOWN
     Route: 065
  4. TONIC FOR STOMACCH [Concomitant]
     Indication: PRODUCT USED FOR UNKNOWN INDICATION
     Dosage: DOSING DETAILS UNKNOWN
     Route: 065

REACTIONS (6)
  - Hepatitis C [Recovering/Resolving]
  - Pain in extremity [Not Recovered/Not Resolved]
  - Back pain [Not Recovered/Not Resolved]
  - Diabetes mellitus [Recovered/Resolved]
  - Off label use [Recovered/Resolved]
  - Condition aggravated [Not Recovered/Not Resolved]
